FAERS Safety Report 7414849-4 (Version None)
Quarter: 2011Q2

REPORT INFORMATION
  Report Type: 
  Country: None (occurrence: None)
  Receive Date: 20110414
  Receipt Date: 20110405
  Transmission Date: 20111010
  Serious: Yes (Other)
  Sender: FDA-Public Use
  Company Number: DE-ASTRAZENECA-2011SE19049

PATIENT
  Age: 46 Year
  Sex: Female
  Weight: 60 kg

DRUGS (1)
  1. PROPOFOL [Suspect]
     Indication: COLONOSCOPY
     Dosage: 200 MG
     Route: 042

REACTIONS (5)
  - ANOSMIA [None]
  - HEADACHE [None]
  - RESPIRATORY DEPRESSION [None]
  - HYPOGEUSIA [None]
  - VOMITING [None]
